FAERS Safety Report 8972519 (Version 1)
Quarter: 2012Q4

REPORT INFORMATION
  Report Type: Spontaneous
  Country: US (occurrence: None)
  Receive Date: 20121217
  Receipt Date: 20121217
  Transmission Date: 20130627
  Serious: Yes (Hospitalization)
  Sender: FDA-Public Use
  Company Number: None

PATIENT
  Age: 78 Year
  Sex: Female
  Weight: 43.09 kg

DRUGS (1)
  1. MOBIC [Suspect]
     Indication: PAIN

REACTIONS (5)
  - Haemorrhage [None]
  - Asthenia [None]
  - Pallor [None]
  - Diverticulum [None]
  - Haematochezia [None]
